FAERS Safety Report 5762322-1 (Version None)
Quarter: 2008Q2

REPORT INFORMATION
  Report Type: 
  Country: None (occurrence: None)
  Receive Date: 20080609
  Receipt Date: 20080530
  Transmission Date: 20081010
  Serious: Yes (Other)
  Sender: FDA-Public Use
  Company Number: PHNU2008DE01956

PATIENT
  Sex: Female

DRUGS (1)
  1. METHERGINE [Suspect]
     Indication: POSTPARTUM DISORDER

REACTIONS (2)
  - GASTROINTESTINAL HAEMORRHAGE [None]
  - SURGERY [None]
